FAERS Safety Report 8361699-0 (Version None)
Quarter: 2012Q2

REPORT INFORMATION
  Report Type: 
  Country: None (occurrence: None)
  Receive Date: 20120514
  Receipt Date: 20120427
  Transmission Date: 20120825
  Serious: Yes (Hospitalization, Other)
  Sender: FDA-Public Use
  Company Number: 2012-000516

PATIENT
  Age: 62 Year
  Sex: Female

DRUGS (27)
  1. ACTONEL [Suspect]
     Indication: OSTEOPENIA
     Dosage: 35 MG ONCE WEEKLY, ORAL
     Route: 048
     Dates: start: 20041110, end: 20080613
  2. TRICOR [Concomitant]
  3. KETOCONAZOLE [Concomitant]
  4. HYDROCODONE W/APAP (HYDROCODONE, PARACETAMOL) [Concomitant]
  5. METOCLOPRAMIDE [Concomitant]
  6. MOMETASONE FUROATE [Concomitant]
  7. ZETIA [Concomitant]
  8. NABUMETONE [Concomitant]
  9. ZYRTEC [Concomitant]
  10. LYRICA [Concomitant]
  11. FLUTICASONE PROPIONATE [Concomitant]
  12. HYDROCODONE BITARTRATE W/IBUPROFEN (HYDROCODONE BITARTRATE, IBUPROFEN) [Concomitant]
  13. ALENDRONATE SODIUM [Suspect]
     Indication: OSTEOPENIA
     Dosage: 70 MG ONCE WEEKLY, ORAL
     Route: 048
     Dates: start: 20080601, end: 20111001
  14. CYMBALTA [Concomitant]
  15. CALTRATE + D (CALCIUM CARBONATE, COLECALCIFEROL) [Concomitant]
  16. METHOCARBAMOL [Concomitant]
  17. SKELAXIN [Concomitant]
  18. PREDNISONE TAB [Concomitant]
  19. MEDROXYPROGESTERONE [Concomitant]
  20. TAMIFLU [Concomitant]
  21. AMOXICILLIN [Concomitant]
  22. ZOLOFT [Concomitant]
  23. ACIPHEX [Concomitant]
  24. AZITHROMYCIN [Concomitant]
  25. CEFUROXIME [Concomitant]
  26. PSEUDOVENT (GUAIFENESIN, PSEUDOEPHEDRINE HYDROCHLORIDE) [Concomitant]
  27. TRAMADOL HCL [Concomitant]

REACTIONS (7)
  - FRACTURE DELAYED UNION [None]
  - FRACTURE NONUNION [None]
  - PAIN IN EXTREMITY [None]
  - FEMUR FRACTURE [None]
  - ARTHRALGIA [None]
  - FALL [None]
  - FOOT FRACTURE [None]
